FAERS Safety Report 18920454 (Version 1)
Quarter: 2021Q1

REPORT INFORMATION
  Report Type: Report from Study
  Country: BR (occurrence: BR)
  Receive Date: 20210222
  Receipt Date: 20210222
  Transmission Date: 20210420
  Serious: Yes (Other)
  Sender: FDA-Public Use
  Company Number: BR-JNJFOC-20210233766

PATIENT
  Sex: Female

DRUGS (2)
  1. SIMPONI [Suspect]
     Active Substance: GOLIMUMAB
     Indication: ANKYLOSING SPONDYLITIS
     Dosage: 1 DOSE EVERY 4 WEEKS
     Route: 058
  2. PREGABALINE [Concomitant]
     Active Substance: PREGABALIN

REACTIONS (3)
  - Immune system disorder [Unknown]
  - Fungal infection [Unknown]
  - Pneumonia [Unknown]
